FAERS Safety Report 22603779 (Version 10)
Quarter: 2024Q1

REPORT INFORMATION
  Report Type: Spontaneous
  Country: CA (occurrence: CA)
  Receive Date: 20230615
  Receipt Date: 20240301
  Transmission Date: 20240410
  Serious: Yes (Hospitalization, Other)
  Sender: FDA-Public Use
  Company Number: CA-CELLTRION INC.-2023CA009798

PATIENT

DRUGS (31)
  1. INFLECTRA [Suspect]
     Active Substance: INFLIXIMAB-DYYB
     Indication: Colitis ulcerative
     Dosage: 5 MG/KG, 0, 2, 6 WEEKS, THEN EVERY 8 WEEKS
     Route: 042
     Dates: start: 20230504, end: 20230519
  2. INFLECTRA [Suspect]
     Active Substance: INFLIXIMAB-DYYB
     Dosage: 1050 MG (10MG/KG), WEEK 6 (RESCUE DOSE) AND THEN EVERY 8 WEEKS
     Route: 042
     Dates: start: 20230607
  3. INFLECTRA [Suspect]
     Active Substance: INFLIXIMAB-DYYB
     Dosage: 1050 MG, (10MG/KG) WEEK 6 (RESCUE DOSE) AND THEN EVERY 8 WEEKS
     Route: 042
     Dates: start: 20230607
  4. INFLECTRA [Suspect]
     Active Substance: INFLIXIMAB-DYYB
     Dosage: 800 MG (6.89 MG/KG), EVERY 4 WEEKS
     Route: 042
     Dates: start: 20230712
  5. INFLECTRA [Suspect]
     Active Substance: INFLIXIMAB-DYYB
     Dosage: 800 MG (6.89 MG/KG), EVERY 4 WEEKS
     Route: 042
     Dates: start: 20230712
  6. INFLECTRA [Suspect]
     Active Substance: INFLIXIMAB-DYYB
     Dosage: 800MG, EVERY 4 WEEKS
     Route: 042
     Dates: start: 20230809
  7. INFLECTRA [Suspect]
     Active Substance: INFLIXIMAB-DYYB
     Dosage: 800MG, AFTER 4 WEEKS
     Route: 042
     Dates: start: 20230906
  8. INFLECTRA [Suspect]
     Active Substance: INFLIXIMAB-DYYB
     Dosage: 800MG, AFTER 4 WEEKS
     Route: 042
     Dates: start: 20231004
  9. INFLECTRA [Suspect]
     Active Substance: INFLIXIMAB-DYYB
     Dosage: 7.5 MG/KG, EVERY 4 WEEKS
     Route: 042
     Dates: start: 20231129
  10. INFLECTRA [Suspect]
     Active Substance: INFLIXIMAB-DYYB
     Dosage: 682.5MG (7.5 MG/KG) AFTER 4 WEEKS 2 DAYS (PRESCRIBED EVERY 4 WEEKS)
     Route: 042
     Dates: start: 20231229
  11. INFLECTRA [Suspect]
     Active Substance: INFLIXIMAB-DYYB
     Dosage: 5 MG/KG, EVERY 6 WEEK (450MG AFTER 7 WEEKS AND 5 DAYS)
     Route: 042
     Dates: start: 20240221
  12. AMPHETAMINE [Concomitant]
     Active Substance: AMPHETAMINE
     Dosage: UNK
  13. ALYSENA [Concomitant]
     Dosage: UNK
  14. BENZTROPINE MESYLATE [Concomitant]
     Active Substance: BENZTROPINE MESYLATE
     Dosage: UNK
  15. BUPROPION [Concomitant]
     Active Substance: BUPROPION
     Dosage: UNK
  16. DIPHENHYDRAMINE [Concomitant]
     Active Substance: DIPHENHYDRAMINE
     Indication: Premedication
     Dosage: UNK
     Dates: start: 20230712, end: 20230712
  17. DOMPERIDONE [Concomitant]
     Active Substance: DOMPERIDONE
     Dosage: UNK
  18. ENTYVIO [Concomitant]
     Active Substance: VEDOLIZUMAB
     Dosage: UNK
  19. FLUVOXAMINE [Concomitant]
     Active Substance: FLUVOXAMINE
     Dosage: UNK
  20. GABAPENTIN [Concomitant]
     Active Substance: GABAPENTIN
     Dosage: UNK
  21. LITHIUM [Concomitant]
     Active Substance: LITHIUM
     Dosage: UNK
  22. LORAZEPAM [Concomitant]
     Active Substance: LORAZEPAM
     Dosage: UNK
  23. NOVORAPID [Concomitant]
     Active Substance: INSULIN ASPART
     Dosage: UNK
  24. PANTOPRAZOLE SODIUM [Concomitant]
     Active Substance: PANTOPRAZOLE SODIUM
     Dosage: UNK
  25. PREDNISONE [Concomitant]
     Active Substance: PREDNISONE
     Dosage: UNK
  26. QUETIAPINE [Concomitant]
     Active Substance: QUETIAPINE
     Dosage: UNK
  27. RISPERIDONE [Concomitant]
     Active Substance: RISPERIDONE
     Dosage: UNK
  28. SULFASALAZINE [Concomitant]
     Active Substance: SULFASALAZINE
     Dosage: UNK
  29. TRESIBA [Concomitant]
     Active Substance: INSULIN DEGLUDEC
     Dosage: UNK
  30. TURBOCORT [Concomitant]
     Dosage: INHALER
  31. XOLAIR [Concomitant]
     Active Substance: OMALIZUMAB
     Dosage: UNK

REACTIONS (16)
  - Mental disorder [Recovered/Resolved]
  - Weight increased [Unknown]
  - Intestinal dilatation [Unknown]
  - Dizziness [Recovered/Resolved]
  - Pruritus [Recovered/Resolved]
  - Nausea [Recovered/Resolved]
  - Constipation [Unknown]
  - Nausea [Unknown]
  - Drug level increased [Unknown]
  - Crying [Recovered/Resolved]
  - Anxiety [Recovered/Resolved]
  - Weight decreased [Unknown]
  - Rash [Unknown]
  - Therapeutic response shortened [Unknown]
  - Condition aggravated [Not Recovered/Not Resolved]
  - Off label use [Unknown]

NARRATIVE: CASE EVENT DATE: 20230101
